FAERS Safety Report 21246165 (Version 3)
Quarter: 2022Q4

REPORT INFORMATION
  Report Type: Spontaneous
  Country: JP (occurrence: JP)
  Receive Date: 20220824
  Receipt Date: 20221019
  Transmission Date: 20230113
  Serious: Yes (Hospitalization)
  Sender: FDA-Public Use
  Company Number: JP-CHUGAI-2022032807

PATIENT
  Age: 2 Decade
  Sex: Male
  Weight: 55 kg

DRUGS (1)
  1. HEMLIBRA [Suspect]
     Active Substance: EMICIZUMAB-KXWH
     Indication: Haemophilia A with anti factor VIII
     Dosage: 1.5 MILLIGRAM/KILOGRAM, ONCE/WEEK
     Route: 058
     Dates: start: 20180810

REACTIONS (2)
  - Muscle haemorrhage [Recovered/Resolved]
  - Muscle disorder [Unknown]

NARRATIVE: CASE EVENT DATE: 20220807
